FAERS Safety Report 7229261-0 (Version None)
Quarter: 2011Q1

REPORT INFORMATION
  Report Type: 
  Country: None (occurrence: None)
  Receive Date: 20110117
  Receipt Date: 20110106
  Transmission Date: 20110831
  Serious: Yes (Hospitalization, Other)
  Sender: FDA-Public Use
  Company Number: US-ELI_LILLY_AND_COMPANY-US201002002518

PATIENT
  Sex: Female

DRUGS (6)
  1. CRESTOR [Concomitant]
  2. ASPIRIN [Concomitant]
  3. ZOCOR [Concomitant]
  4. FORTEO [Suspect]
     Dosage: 20 UG, DAILY (1/D)
  5. PLAVIX [Concomitant]
  6. FORTEO [Suspect]
     Indication: OSTEOPOROSIS
     Dosage: 20 UG, DAILY (1/D)

REACTIONS (5)
  - MUSCLE SPASMS [None]
  - CORONARY ARTERY OCCLUSION [None]
  - HAIR COLOUR CHANGES [None]
  - INJECTION SITE HAEMATOMA [None]
  - CHEST PAIN [None]
